FAERS Safety Report 21746441 (Version 1)
Quarter: 2022Q4

REPORT INFORMATION
  Report Type: Spontaneous
  Country: DK (occurrence: DK)
  Receive Date: 20221219
  Receipt Date: 20221219
  Transmission Date: 20230113
  Serious: Yes (Other)
  Sender: FDA-Public Use
  Company Number: DK-WOCKHARDT LIMITED-2022WLD000051

PATIENT
  Age: 42 Year
  Sex: Male

DRUGS (1)
  1. AZITHROMYCIN [Suspect]
     Active Substance: AZITHROMYCIN
     Indication: Gastroenteritis
     Dosage: 500 MILLIGRAM, TID
     Route: 048

REACTIONS (1)
  - Plantar fasciitis [Recovering/Resolving]
